FAERS Safety Report 8836297 (Version 1)
Quarter: 2012Q4

REPORT INFORMATION
  Report Type: 
  Country: MX (occurrence: MX)
  Receive Date: 20121011
  Receipt Date: 20121011
  Transmission Date: 20130627
  Serious: Yes (Death)
  Sender: FDA-Public Use
  Company Number: MX-B.I. PHARMACEUTICALS,INC./RIDGEFIELD-2012-MX-00273MX

PATIENT
  Age: 84 Year
  Sex: Male

DRUGS (1)
  1. DABIGATRAN ETEXILATE [Suspect]
     Indication: ORTHOPEDIC PROCEDURE
     Route: 048
     Dates: start: 201209

REACTIONS (1)
  - Hypovolaemic shock [Fatal]
